FAERS Safety Report 8902902 (Version 1)
Quarter: 2012Q4

REPORT INFORMATION
  Report Type: 
  Country: US (occurrence: US)
  Receive Date: 20121113
  Receipt Date: 20121113
  Transmission Date: 20130627
  Serious: Yes (Hospitalization, Other)
  Sender: FDA-Public Use
  Company Number: US-INCYTE CORPORATION-2012IN002297

PATIENT
  Age: 70 None
  Sex: Male

DRUGS (3)
  1. JAKAFI [Suspect]
     Indication: MYELOFIBROSIS
     Dosage: 10 mg, bid
     Route: 048
     Dates: start: 2012, end: 2012
  2. JAKAFI [Suspect]
     Dosage: 10 mg, qd
     Route: 048
     Dates: start: 2012
  3. HYDROXYUREA [Concomitant]
     Dosage: 10 mg, bid

REACTIONS (4)
  - Abdominal pain [Unknown]
  - Oedema peripheral [Unknown]
  - Splenic haemorrhage [Unknown]
  - Pulmonary oedema [Unknown]
